FAERS Safety Report 5397500-7 (Version None)
Quarter: 2007Q3

REPORT INFORMATION
  Report Type: 
  Country: None (occurrence: None)
  Receive Date: 20070726
  Receipt Date: 20070717
  Transmission Date: 20080115
  Serious: Yes (Life-Threatening)
  Sender: FDA-Public Use
  Company Number: FR-TYCO HEALTHCARE/MALLINCKRODT-T200700811

PATIENT
  Age: 76 Year
  Sex: Male

DRUGS (5)
  1. HEXABRIX [Suspect]
     Indication: ARTERIOGRAM
     Dosage: 187 ML, SINGLE
     Route: 013
     Dates: start: 20070601, end: 20070601
  2. FORADIL                            /00958001/ [Concomitant]
  3. QVAR 40 [Concomitant]
  4. ATARAX                             /00058401/ [Concomitant]
     Indication: PREMEDICATION
     Dates: start: 20070531, end: 20070601
  5. HYPOSTAMINE [Concomitant]
     Indication: PREMEDICATION
     Dates: start: 20070531, end: 20070601

REACTIONS (8)
  - BRONCHOSPASM [None]
  - CARDIOGENIC SHOCK [None]
  - CYANOSIS [None]
  - FACE OEDEMA [None]
  - GENERALISED ERYTHEMA [None]
  - OEDEMA MUCOSAL [None]
  - RESPIRATORY ARREST [None]
  - URTICARIA [None]
